FAERS Safety Report 9677477 (Version 3)
Quarter: 2014Q1

REPORT INFORMATION
  Report Type: Report from Study
  Country: US (occurrence: US)
  Receive Date: 20131108
  Receipt Date: 20140206
  Transmission Date: 20141002
  Serious: Yes (Other)
  Sender: FDA-Public Use
  Company Number: PHEH2013US023121

PATIENT
  Age: 60 Year
  Sex: Female
  Weight: 77.98 kg

DRUGS (21)
  1. GILENYA [Suspect]
     Indication: MULTIPLE SCLEROSIS
     Dosage: 0.5 MG, QD
     Route: 048
     Dates: start: 20120512
  2. IRON [Concomitant]
  3. TOPAMAX [Concomitant]
     Dosage: 25 MG, BID
     Route: 048
  4. MYSOLINE [Concomitant]
     Dosage: 50 MG, QAM
     Route: 048
  5. MIRAPEX [Concomitant]
     Dosage: 3 DF, QHS
     Route: 048
  6. TRAMADOL [Concomitant]
     Dosage: 50 MG, TID
     Route: 048
  7. GABAPENTIN [Concomitant]
     Dosage: 300 MG, BID
     Route: 048
  8. BACLOFEN [Concomitant]
     Dosage: 20 MG, TID
     Route: 048
  9. AMLODIPINE BESILATE [Concomitant]
     Dosage: 10 MG, DAILY
     Route: 048
  10. ATENOLOL [Concomitant]
     Dosage: 25 MG, BID
     Route: 048
  11. LISINOPRIL + HIDROCLOROTIAZIDA [Concomitant]
     Dosage: 1 DF, BID
     Route: 048
  12. PREMPRO [Concomitant]
     Dosage: 1 DF, DAILY
     Route: 048
  13. ASA [Concomitant]
     Dosage: 81 MG, UNK
     Route: 048
  14. CALTRATE [Concomitant]
     Dosage: 600 MG, BID
     Route: 048
  15. FISH OIL [Concomitant]
     Route: 048
  16. VITAMIN D3 [Concomitant]
     Route: 048
  17. VOLTAREN [Concomitant]
     Route: 062
  18. CITALOPRAM [Concomitant]
     Route: 048
  19. ESTRADIOL [Concomitant]
     Route: 048
  20. MEDROXYPROGESTERON [Concomitant]
     Dosage: UNK UKN, UNK
     Route: 048
  21. MELOXICAM [Concomitant]
     Route: 048

REACTIONS (6)
  - Platelet count decreased [Not Recovered/Not Resolved]
  - Hypersomnia [Unknown]
  - Loss of consciousness [Recovered/Resolved]
  - Anaemia [Unknown]
  - Fall [Unknown]
  - Fatigue [Unknown]
